FAERS Safety Report 24915338 (Version 1)
Quarter: 2025Q1

REPORT INFORMATION
  Report Type: Spontaneous
  Country: FR (occurrence: FR)
  Receive Date: 20250203
  Receipt Date: 20250203
  Transmission Date: 20250409
  Serious: Yes (Hospitalization)
  Sender: EMD SERONO INC
  Company Number: None

PATIENT
  Age: 22 Year
  Sex: Female

DRUGS (4)
  1. FOLLITROPIN\LUTROPIN ALFA [Suspect]
     Active Substance: FOLLITROPIN\LUTROPIN ALFA
     Indication: Oocyte harvest
     Dates: start: 20241228
  2. CETROTIDE [Suspect]
     Active Substance: CETRORELIX ACETATE
     Indication: Oocyte harvest
     Dates: start: 20250102
  3. ESTRADIOL [Suspect]
     Active Substance: ESTRADIOL
     Indication: Oocyte harvest
  4. ETHINYL ESTRADIOL\LEVONORGESTREL [Suspect]
     Active Substance: ETHINYL ESTRADIOL\LEVONORGESTREL
     Indication: Oocyte harvest
     Dates: start: 20241203, end: 20241222

REACTIONS (1)
  - Pulmonary embolism [Not Recovered/Not Resolved]

NARRATIVE: CASE EVENT DATE: 20250108
